FAERS Safety Report 20831224 (Version 1)
Quarter: 2022Q2

REPORT INFORMATION
  Report Type: Spontaneous
  Country: US (occurrence: US)
  Receive Date: 20220515
  Receipt Date: 20220515
  Transmission Date: 20220721
  Serious: No
  Sender: FDA-Public Use
  Company Number: US-AMGEN-USASP2022077358

PATIENT
  Age: 51 Year
  Sex: Female

DRUGS (1)
  1. PARSABIV [Suspect]
     Active Substance: ETELCALCETIDE HYDROCHLORIDE
     Indication: Hyperparathyroidism secondary
     Dosage: 12.5 MILLIGRAM, THREE TIMES A WEEK
     Route: 042
     Dates: start: 202109

REACTIONS (5)
  - Pain [Not Recovered/Not Resolved]
  - Blood disorder [Not Recovered/Not Resolved]
  - Burning sensation [Not Recovered/Not Resolved]
  - Malaise [Not Recovered/Not Resolved]
  - Discomfort [Not Recovered/Not Resolved]
